FAERS Safety Report 17049777 (Version 2)
Quarter: 2019Q4

REPORT INFORMATION
  Report Type: Spontaneous
  Country: US (occurrence: US)
  Receive Date: 20191119
  Receipt Date: 20191204
  Transmission Date: 20200122
  Serious: No
  Sender: FDA-Public Use
  Company Number: US-VERTEX PHARMACEUTICALS-2019-011201

PATIENT
  Age: 11 Year
  Sex: Male
  Weight: 20 kg

DRUGS (13)
  1. TRIKAFTA [Suspect]
     Active Substance: ELEXACAFTOR\IVACAFTOR\TEZACAFTOR
     Indication: CYSTIC FIBROSIS
     Dosage: 1 DOSAGE FORM, TWICE WEEKLY
     Route: 048
     Dates: start: 20191115
  2. ZENPEP [Concomitant]
     Active Substance: PANCRELIPASE AMYLASE\PANCRELIPASE LIPASE\PANCRELIPASE PROTEASE
  3. PULMOZYME [Concomitant]
     Active Substance: DORNASE ALFA
  4. MEPHYTON [Concomitant]
     Active Substance: PHYTONADIONE
  5. MINOCYCLINE [Concomitant]
     Active Substance: MINOCYCLINE HYDROCHLORIDE
  6. HUMATROPE [Concomitant]
     Active Substance: SOMATROPIN
  7. IPRATROPIUM [Concomitant]
     Active Substance: IPRATROPIUM
  8. CAYSTON [Concomitant]
     Active Substance: AZTREONAM
  9. LANSOPRAZOLE. [Concomitant]
     Active Substance: LANSOPRAZOLE
  10. TOBI PODHALER [Concomitant]
     Active Substance: TOBRAMYCIN
  11. RANITIDINE. [Concomitant]
     Active Substance: RANITIDINE
  12. VENTOLIN [Concomitant]
     Active Substance: ALBUTEROL SULFATE
  13. SODIUM CHLORIDE. [Concomitant]
     Active Substance: SODIUM CHLORIDE

REACTIONS (1)
  - Off label use [Unknown]

NARRATIVE: CASE EVENT DATE: 20191115
